FAERS Safety Report 14920151 (Version 1)
Quarter: 2018Q2

REPORT INFORMATION
  Report Type: Spontaneous
  Country: US (occurrence: US)
  Receive Date: 20180502
  Receipt Date: 20180502
  Transmission Date: 20180711
  Serious: Yes (Life-Threatening, Hospitalization, Disabling, Other)
  Sender: FDA-Public Use
  Company Number: None

PATIENT
  Age: 17 Year
  Sex: Male
  Weight: 70.8 kg

DRUGS (1)
  1. FLUOXETINE [Suspect]
     Active Substance: FLUOXETINE HYDROCHLORIDE
     Indication: DEPRESSION
     Route: 048
     Dates: start: 20180327, end: 20180501

REACTIONS (5)
  - Cardiac arrest [None]
  - Brain injury [None]
  - Hanging [None]
  - Pulseless electrical activity [None]
  - Suicide attempt [None]

NARRATIVE: CASE EVENT DATE: 20180501
